FAERS Safety Report 9780101 (Version 1)
Quarter: 2013Q4

REPORT INFORMATION
  Report Type: Spontaneous
  Country: US (occurrence: US)
  Receive Date: 20131223
  Receipt Date: 20131223
  Transmission Date: 20140711
  Serious: Yes (Hospitalization)
  Sender: FDA-Public Use
  Company Number: US-ELI_LILLY_AND_COMPANY-US201312006397

PATIENT
  Age: 64 Year
  Sex: Female

DRUGS (4)
  1. INSULIN HUMAN [Suspect]
     Indication: TYPE 2 DIABETES MELLITUS
     Dosage: UNK UNK, PRN
     Route: 065
     Dates: start: 2010
  2. INSULIN HUMAN [Suspect]
     Indication: TYPE 2 DIABETES MELLITUS
     Dosage: UNK UNK, PRN
     Route: 065
     Dates: start: 2010
  3. NOVOLIN N [Concomitant]
  4. NOVOLIN R [Concomitant]

REACTIONS (3)
  - Respiratory disorder [Unknown]
  - Staphylococcal sepsis [Recovered/Resolved]
  - Staphylococcal infection [Unknown]
